FAERS Safety Report 21916083 (Version 1)
Quarter: 2023Q1

REPORT INFORMATION
  Report Type: Spontaneous
  Country: IT (occurrence: IT)
  Receive Date: 20230126
  Receipt Date: 20230126
  Transmission Date: 20230418
  Serious: Yes (Hospitalization, Other)
  Sender: FDA-Public Use
  Company Number: IT-JNJFOC-20220313202

PATIENT
  Age: 66 Year
  Sex: Male

DRUGS (36)
  1. VALGANCICLOVIR [Suspect]
     Active Substance: VALGANCICLOVIR
     Indication: Product used for unknown indication
     Dosage: UNK
     Route: 048
  2. GANCICLOVIR [Suspect]
     Active Substance: GANCICLOVIR
     Indication: Cytomegalovirus infection
     Dosage: 1.25 MILLIGRAM/KILOGRAM, 3XW
     Route: 065
  3. GANCICLOVIR [Suspect]
     Active Substance: GANCICLOVIR
     Indication: Congenital cytomegalovirus infection
  4. DARZALEX [Suspect]
     Active Substance: DARATUMUMAB
     Indication: Monoclonal gammopathy
     Dosage: 16 MILLIGRAM/KILOGRAM, QW
     Route: 042
  5. CYCLOPHOSPHAMIDE [Suspect]
     Active Substance: CYCLOPHOSPHAMIDE
     Indication: Monoclonal gammopathy
     Dosage: 350 MG ON DAYS 1, 8, 15
     Route: 048
  6. CYCLOPHOSPHAMIDE [Suspect]
     Active Substance: CYCLOPHOSPHAMIDE
     Indication: Renal failure
  7. CYCLOPHOSPHAMIDE [Suspect]
     Active Substance: CYCLOPHOSPHAMIDE
     Indication: Glomerulonephritis proliferative
  8. LENALIDOMIDE [Concomitant]
     Active Substance: LENALIDOMIDE
     Indication: Monoclonal gammopathy
     Dosage: UNK, (D-RD REGIMEN)
     Route: 065
  9. LENALIDOMIDE [Concomitant]
     Active Substance: LENALIDOMIDE
     Indication: Glomerulonephritis proliferative
     Dosage: ONCE EVERY 2 WEEKS
     Route: 065
  10. LENALIDOMIDE [Concomitant]
     Active Substance: LENALIDOMIDE
     Dosage: FOR EIGHT ADDITIONAL DOSES
     Route: 065
  11. BORTEZOMIB [Concomitant]
     Active Substance: BORTEZOMIB
     Indication: Monoclonal gammopathy
     Dosage: 1.3 MG/SQ. METER (1, 8, 15, 22
     Route: 058
  12. BORTEZOMIB [Concomitant]
     Active Substance: BORTEZOMIB
     Indication: Glomerulonephritis proliferative
  13. CYCLOPHOSPHAMIDE [Concomitant]
     Active Substance: CYCLOPHOSPHAMIDE
     Indication: Monoclonal gammopathy
     Dosage: 1000 MILLIGRAM, MONTHLY (500 MG, EVERY 2 WEEKS
     Route: 042
  14. CYCLOPHOSPHAMIDE [Concomitant]
     Active Substance: CYCLOPHOSPHAMIDE
     Indication: Renal failure
     Dosage: ONCE 2 WEEKS FOR 4 DOSES
     Route: 042
  15. CYCLOPHOSPHAMIDE [Concomitant]
     Active Substance: CYCLOPHOSPHAMIDE
     Indication: Glomerulonephritis proliferative
     Dosage: 8 CYCLES , DAYS 1, 8, 15 +
     Route: 042
  16. CYCLOPHOSPHAMIDE [Concomitant]
     Active Substance: CYCLOPHOSPHAMIDE
     Indication: Renal impairment
  17. COTRIMOXAZOLE [Concomitant]
     Active Substance: SULFAMETHOXAZOLE\TRIMETHOPRIM
     Indication: Prophylaxis
     Dosage: UNK 4 WEEK
     Route: 065
  18. COTRIMOXAZOLE [Concomitant]
     Active Substance: SULFAMETHOXAZOLE\TRIMETHOPRIM
     Indication: Antibiotic prophylaxis
  19. DARATUMUMAB [Concomitant]
     Active Substance: DARATUMUMAB
     Indication: Monoclonal gammopathy
     Dosage: 32 MILLIGRAM, MONTHLY
     Route: 065
  20. DARATUMUMAB [Concomitant]
     Active Substance: DARATUMUMAB
     Indication: Glomerulonephritis proliferative
     Dosage: 16 MG/KG, QW,FOR 8 WEEKS
     Route: 042
  21. DARATUMUMAB [Concomitant]
     Active Substance: DARATUMUMAB
     Dosage: 32 MILLIGRAM/KG, MONTHLY
     Route: 065
  22. DARATUMUMAB [Concomitant]
     Active Substance: DARATUMUMAB
     Dosage: 16 MG/KG, Q2W,FOR 8 WEEKS
     Route: 042
  23. DARATUMUMAB [Concomitant]
     Active Substance: DARATUMUMAB
     Dosage: 16 MG/KG, QW,FOR 8 WEEKS
     Route: 042
  24. DEXAMETHASONE [Concomitant]
     Active Substance: DEXAMETHASONE
     Indication: Monoclonal gammopathy
     Dosage: 20 MILLIGRAM (20 MG ON DAYS 1, 8, 15,22, EACH OF THESE FOR 35 DAYS)
     Route: 065
  25. DEXAMETHASONE [Concomitant]
     Active Substance: DEXAMETHASONE
     Indication: Glomerulonephritis proliferative
     Dosage: 8 CYCLES, ON DAYS 1, 8, 15,22
     Route: 048
  26. DEXAMETHASONE [Concomitant]
     Active Substance: DEXAMETHASONE
     Dosage: 20 MILLIGRAM (20 MG ON THE DAY OF CHEMOTHERAPY)
     Route: 048
  27. DEXAMETHASONE [Concomitant]
     Active Substance: DEXAMETHASONE
     Dosage: UNK
     Route: 048
  28. DEXAMETHASONE [Concomitant]
     Active Substance: DEXAMETHASONE
     Dosage: UNK
     Route: 065
  29. PREDNISONE [Concomitant]
     Active Substance: PREDNISONE
     Indication: Renal failure
     Dosage: 50 MILLIGRAM
     Route: 048
  30. ACYCLOVIR [Concomitant]
     Active Substance: ACYCLOVIR
     Indication: Prophylaxis
     Dosage: UNK
     Route: 065
  31. FLUCONAZOLE [Concomitant]
     Active Substance: FLUCONAZOLE
     Indication: Prophylaxis
     Dosage: UNK
     Route: 065
  32. METHYLPREDNISOLONE [Concomitant]
     Active Substance: METHYLPREDNISOLONE
     Indication: Renal failure
     Dosage: 125 MILLIGRAM, QD FOR 3 DAY
     Route: 042
  33. ANAGRELIDE [Concomitant]
     Active Substance: ANAGRELIDE
     Indication: Thrombocytosis
     Dosage: UNK
     Route: 065
  34. MEROPENEM [Concomitant]
     Active Substance: MEROPENEM
     Indication: Antibiotic therapy
     Dosage: BROAD-SPECTRUM ANTIBIOTIC THERAPY
     Route: 065
  35. TEICOPLANIN [Concomitant]
     Active Substance: TEICOPLANIN
     Indication: Antibiotic therapy
     Dosage: BROAD-SPECTRUM ANTIBIOTIC THERAPY
     Route: 065
  36. VORICONAZOLE [Concomitant]
     Active Substance: VORICONAZOLE
     Dosage: UNK
     Route: 065

REACTIONS (18)
  - Pleural effusion [Unknown]
  - Acinetobacter infection [Unknown]
  - Cytomegalovirus test positive [Recovered/Resolved]
  - Aspergillus test positive [Recovered/Resolved]
  - Renal impairment [Recovering/Resolving]
  - Oedema peripheral [Unknown]
  - Nephrotic syndrome [Unknown]
  - Cutaneous vasculitis [Unknown]
  - Petechiae [Unknown]
  - Neutropenia [Unknown]
  - Pneumonia [Unknown]
  - Aspergillus infection [Unknown]
  - Cytomegalovirus infection [Unknown]
  - Off label use [Unknown]
  - Product use in unapproved indication [Unknown]
  - Drug ineffective [Unknown]
  - Febrile neutropenia [Unknown]
  - Hypersensitivity [Unknown]
